FAERS Safety Report 13635372 (Version 10)
Quarter: 2018Q2

REPORT INFORMATION
  Report Type: Spontaneous
  Country: US (occurrence: US)
  Receive Date: 20170609
  Receipt Date: 20180409
  Transmission Date: 20180711
  Serious: Yes (Other)
  Sender: FDA-Public Use
  Company Number: US-PFIZER INC-2017248636

PATIENT
  Age: 70 Year
  Sex: Female
  Weight: 101 kg

DRUGS (9)
  1. COMPAZINE [Concomitant]
     Active Substance: PROCHLORPERAZINE MALEATE
     Dosage: UNK
  2. COZAAR [Concomitant]
     Active Substance: LOSARTAN POTASSIUM
     Indication: BLOOD PRESSURE ABNORMAL
     Dosage: UNK
  3. HYDROCHLOROTHIAZIDE. [Concomitant]
     Active Substance: HYDROCHLOROTHIAZIDE
     Dosage: UNK
  4. METFORMIN [Concomitant]
     Active Substance: METFORMIN HYDROCHLORIDE
     Dosage: UNK
  5. PROTONIX [Concomitant]
     Active Substance: PANTOPRAZOLE SODIUM
     Dosage: UNK
  6. SUTENT [Suspect]
     Active Substance: SUNITINIB MALATE
     Dosage: 37.5 MG, DAILY
     Dates: start: 20180224
  7. AMARYL [Concomitant]
     Active Substance: GLIMEPIRIDE
     Dosage: UNK
  8. CREON [Concomitant]
     Active Substance: PANCRELIPASE AMYLASE\PANCRELIPASE LIPASE\PANCRELIPASE PROTEASE
     Dosage: UNK
  9. SUTENT [Suspect]
     Active Substance: SUNITINIB MALATE
     Indication: PANCREATIC NEUROENDOCRINE TUMOUR
     Dosage: 37.5 MG, DAILY
     Dates: start: 20170522, end: 20180122

REACTIONS (39)
  - Diarrhoea [Not Recovered/Not Resolved]
  - Alopecia [Unknown]
  - Dry skin [Unknown]
  - Laceration [Unknown]
  - Chromaturia [Recovered/Resolved]
  - Fatigue [Unknown]
  - Blood pressure increased [Not Recovered/Not Resolved]
  - Respiratory tract infection [Recovered/Resolved]
  - Headache [Not Recovered/Not Resolved]
  - Nausea [Unknown]
  - Constipation [Recovering/Resolving]
  - Rash macular [Unknown]
  - Asthenia [Recovered/Resolved]
  - Sciatica [Unknown]
  - Viral infection [Recovered/Resolved]
  - Pyrexia [Recovered/Resolved]
  - Respiratory disorder [Unknown]
  - Sinus disorder [Unknown]
  - Periorbital oedema [Unknown]
  - Flatulence [Unknown]
  - Tinnitus [Unknown]
  - Dysgeusia [Unknown]
  - Hyperaesthesia [Unknown]
  - Dyspnoea [Unknown]
  - Drug dose omission [Unknown]
  - Blood glucose increased [Recovering/Resolving]
  - Abdominal pain upper [Not Recovered/Not Resolved]
  - Pain [Recovered/Resolved]
  - Paronychia [Recovered/Resolved]
  - Dry mouth [Unknown]
  - Ear infection [Unknown]
  - Aphthous ulcer [Unknown]
  - Haematochezia [Unknown]
  - Neoplasm progression [Unknown]
  - Cough [Not Recovered/Not Resolved]
  - Stomatitis [Unknown]
  - Gingival pain [Unknown]
  - Nasopharyngitis [Recovered/Resolved]
  - Malaise [Not Recovered/Not Resolved]

NARRATIVE: CASE EVENT DATE: 20170704
